FAERS Safety Report 5149056-1 (Version None)
Quarter: 2006Q4

REPORT INFORMATION
  Report Type: 
  Country: None (occurrence: None)
  Receive Date: 20061113
  Receipt Date: 20061030
  Transmission Date: 20070319
  Serious: Yes (Hospitalization)
  Sender: FDA-Public Use
  Company Number: FR-JNJFOC-20061102351

PATIENT
  Sex: Female

DRUGS (6)
  1. ACETAMINOPHEN AND TRAMADOL HCL [Suspect]
     Indication: DRUG USE FOR UNKNOWN INDICATION
     Route: 048
     Dates: start: 20051118, end: 20060115
  2. ADVIL [Suspect]
     Indication: DRUG USE FOR UNKNOWN INDICATION
     Route: 065
  3. CELEBREX [Suspect]
     Indication: DRUG USE FOR UNKNOWN INDICATION
  4. CELIPROLOL HYDROCHLORIDE [Concomitant]
     Route: 065
  5. BROMAZEPAM [Concomitant]
     Route: 065
  6. DIOSMIN [Concomitant]
     Route: 065

REACTIONS (3)
  - BONE MARROW FAILURE [None]
  - ECCHYMOSIS [None]
  - PANCYTOPENIA [None]
